FAERS Safety Report 11490539 (Version 3)
Quarter: 2015Q3

REPORT INFORMATION
  Report Type: Spontaneous
  Country: BR (occurrence: BR)
  Receive Date: 20150910
  Receipt Date: 20150924
  Transmission Date: 20151125
  Serious: Yes (Life-Threatening)
  Sender: FDA-Public Use
  Company Number: BR-GUERBET LLC-1041795

PATIENT
  Age: 21 Year
  Weight: 82 kg

DRUGS (2)
  1. HEXABRIX [Suspect]
     Active Substance: IOXAGLATE MEGLUMINE\IOXAGLATE SODIUM
     Indication: CATHETER MANAGEMENT
     Route: 013
     Dates: start: 20150608, end: 20150608
  2. METALYSE [Concomitant]
     Active Substance: TENECTEPLASE

REACTIONS (4)
  - Papule [Recovering/Resolving]
  - Hypersensitivity [Recovering/Resolving]
  - Hyperaemia [Recovering/Resolving]
  - Eyelid oedema [Recovering/Resolving]

NARRATIVE: CASE EVENT DATE: 20150608
